FAERS Safety Report 12715066 (Version 2)
Quarter: 2016Q4

REPORT INFORMATION
  Report Type: Spontaneous
  Country: None (occurrence: DE)
  Receive Date: 20160905
  Receipt Date: 20161014
  Transmission Date: 20170207
  Serious: Yes (Life-Threatening, Hospitalization)
  Sender: FDA-Public Use
  Company Number: DE-ALLERGAN-1667639US

PATIENT
  Age: 87 Year
  Sex: Male

DRUGS (1)
  1. DECAPEPTYL 11.25 [Suspect]
     Active Substance: TRIPTORELIN PAMOATE
     Indication: PROSTATE CANCER
     Dosage: 11.25 MG, 1 IN 90 DAYS
     Route: 058
     Dates: start: 20151102

REACTIONS (7)
  - Herpes zoster [Not Recovered/Not Resolved]
  - Swelling [Not Recovered/Not Resolved]
  - Headache [Not Recovered/Not Resolved]
  - Pruritus [Unknown]
  - Head discomfort [Not Recovered/Not Resolved]
  - Incorrect route of drug administration [Unknown]
  - Hot flush [Unknown]

NARRATIVE: CASE EVENT DATE: 20151102
